FAERS Safety Report 4872654-7 (Version None)
Quarter: 2006Q1

REPORT INFORMATION
  Report Type: 
  Country: None (occurrence: None)
  Receive Date: 20060103
  Receipt Date: 20051214
  Transmission Date: 20060701
  Serious: Yes (Hospitalization)
  Sender: FDA-Public Use
  Company Number: DEU-2005-0001870

PATIENT
  Age: 32 Year
  Sex: Female

DRUGS (2)
  1. MORPHINE SULFATE INJ [Suspect]
     Indication: PAIN
     Dosage: 0.02 MG/ML, SEE TEXT, EPIDURAL
     Route: 008
  2. BUPIVACAINE [Suspect]
     Indication: PAIN
     Dosage: SEE TEXT, EPIDURAL
     Route: 008

REACTIONS (7)
  - BACK PAIN [None]
  - FISTULA [None]
  - HEADACHE [None]
  - INJECTION SITE ABSCESS [None]
  - POSTOPERATIVE INFECTION [None]
  - PURULENT DISCHARGE [None]
  - STAPHYLOCOCCAL INFECTION [None]
